FAERS Safety Report 9374423 (Version 3)
Quarter: 2013Q3

REPORT INFORMATION
  Report Type: Report from Study
  Country: DE (occurrence: DE)
  Receive Date: 20130628
  Receipt Date: 20130726
  Transmission Date: 20140515
  Serious: Yes (Hospitalization)
  Sender: FDA-Public Use
  Company Number: DE-AMGEN-DEUCT2013044995

PATIENT
  Sex: Male

DRUGS (4)
  1. PANITUMUMAB [Suspect]
     Indication: CHOLANGIOCARCINOMA
     Dosage: 9 MG/KG, UNK
     Dates: start: 20130213, end: 20130529
  2. GEMCITABIN [Concomitant]
     Indication: CHOLANGIOCARCINOMA
     Dosage: 1000 MG/M2, UNK
     Dates: start: 20130213, end: 20130605
  3. CISPLATIN [Concomitant]
     Indication: CHOLANGIOCARCINOMA
     Dosage: 25 MG/M2, UNK
     Dates: start: 20130213, end: 20130605
  4. INSULIN [Concomitant]

REACTIONS (3)
  - Syncope [Recovered/Resolved]
  - General physical health deterioration [Not Recovered/Not Resolved]
  - Thrombocytopenia [Recovered/Resolved]
